FAERS Safety Report 18925068 (Version 1)
Quarter: 2021Q1

REPORT INFORMATION
  Report Type: Other
  Country: US (occurrence: US)
  Receive Date: 20210223
  Receipt Date: 20210223
  Transmission Date: 20210420
  Serious: Yes (Other)
  Sender: FDA-Public Use
  Company Number: US-ROCHE-2770811

PATIENT
  Sex: Female

DRUGS (1)
  1. OCREVUS [Suspect]
     Active Substance: OCRELIZUMAB
     Indication: RELAPSING MULTIPLE SCLEROSIS
     Dosage: PRESCRIBED WITH FIRST DOSE 300 MG OR 2 WEEKS LATER 300 MG THEN EVERY 6 MONTHS AFTER INITIAL DOSE?DAT
     Route: 065
     Dates: start: 20190905

REACTIONS (1)
  - COVID-19 pneumonia [Unknown]
